FAERS Safety Report 24251848 (Version 1)
Quarter: 2024Q3

REPORT INFORMATION
  Report Type: Spontaneous
  Country: US (occurrence: US)
  Receive Date: 20240827
  Receipt Date: 20240827
  Transmission Date: 20241017
  Serious: No
  Sender: PADAGIS
  Company Number: US-PADAGIS-2024PAD01340

PATIENT

DRUGS (2)
  1. TESTOSTERONE [Suspect]
     Active Substance: TESTOSTERONE
     Indication: Product used for unknown indication
     Dosage: QD  TWO PUMPS PER DAY
     Route: 065
  2. ANDROGEL [Concomitant]
     Active Substance: TESTOSTERONE
     Indication: Product used for unknown indication
     Dosage: UNK
     Route: 065

REACTIONS (3)
  - Hair growth abnormal [Unknown]
  - Asthenia [Unknown]
  - Blood testosterone increased [Unknown]
